FAERS Safety Report 4294560-1 (Version None)
Quarter: 2004Q1

REPORT INFORMATION
  Report Type: 
  Country: None (occurrence: None)
  Receive Date: 20040211
  Receipt Date: 20040130
  Transmission Date: 20041129
  Serious: Yes (Hospitalization)
  Sender: FDA-Public Use
  Company Number: 03P-056-0244506-00

PATIENT
  Age: 40 Year
  Sex: Male

DRUGS (6)
  1. KALETRA [Suspect]
     Indication: HIV INFECTION
     Dosage: PER ORAL
     Route: 048
  2. TENOFOVIR DISOPROXIL FUMARATE [Suspect]
     Dates: start: 20010801
  3. ZALCITABINE [Concomitant]
  4. METFORMIN HCL [Concomitant]
  5. PYRIMETHAMINE [Concomitant]
  6. FENOFIBRATE [Concomitant]

REACTIONS (6)
  - ASTHENIA [None]
  - DIALYSIS [None]
  - DIARRHOEA [None]
  - NEPHROPATHY TOXIC [None]
  - RENAL FAILURE ACUTE [None]
  - RENAL TUBULAR DISORDER [None]
